FAERS Safety Report 6983417-0 (Version None)
Quarter: 2010Q3

REPORT INFORMATION
  Report Type: 
  Country: None (occurrence: None)
  Receive Date: 20100914
  Receipt Date: 20100914
  Transmission Date: 20110219
  Serious: Yes (Hospitalization)
  Sender: FDA-Public Use
  Company Number: None

PATIENT
  Sex: Female
  Weight: 87.4 kg

DRUGS (3)
  1. IFOSFAMIDE [Suspect]
     Dosage: 8910 MG
  2. TAXOL [Suspect]
     Dosage: 250 MG
  3. NEULASTA [Suspect]
     Dosage: 6 MG

REACTIONS (5)
  - DYSPNOEA [None]
  - LUNG DISORDER [None]
  - NEUTROPENIA [None]
  - PSEUDOMONAS TEST POSITIVE [None]
  - PYREXIA [None]
